FAERS Safety Report 4959740-8 (Version None)
Quarter: 2006Q1

REPORT INFORMATION
  Report Type: 
  Country: None (occurrence: None)
  Receive Date: 20060331
  Receipt Date: 20060323
  Transmission Date: 20060701
  Serious: Yes (Hospitalization)
  Sender: FDA-Public Use
  Company Number: US-JNJFOC-20060307571

PATIENT
  Sex: Female
  Weight: 61.24 kg

DRUGS (7)
  1. DURAGESIC-100 [Suspect]
     Route: 062
  2. DURAGESIC-100 [Suspect]
     Route: 062
  3. DURAGESIC-100 [Suspect]
     Route: 062
  4. SYNTHROID [Concomitant]
     Indication: HORMONE REPLACEMENT THERAPY
     Route: 048
  5. ENTOCORT [Concomitant]
     Route: 048
  6. MORPHINE [Concomitant]
     Indication: PAIN
     Dosage: ONCE EVERY 8 HOURS AS NEEDED, ORAL
     Route: 048
  7. IMODIUM [Concomitant]
     Dosage: 2 MG, ONCE EVERY 6 HOURS AS NEEDED, ORAL
     Route: 048

REACTIONS (4)
  - COAGULOPATHY [None]
  - CROHN'S DISEASE [None]
  - STAPHYLOCOCCAL INFECTION [None]
  - WEIGHT DECREASED [None]
